FAERS Safety Report 25256285 (Version 1)
Quarter: 2025Q2

REPORT INFORMATION
  Report Type: Spontaneous
  Country: US (occurrence: US)
  Receive Date: 20250430
  Receipt Date: 20250430
  Transmission Date: 20250716
  Serious: No
  Sender: HIKMA
  Company Number: US-HIKMA PHARMACEUTICALS USA INC.-US-H14001-25-01459

PATIENT
  Sex: Male

DRUGS (4)
  1. ABIRATERONE ACETATE [Suspect]
     Active Substance: ABIRATERONE ACETATE
     Indication: Prostate cancer
     Dosage: 1000 MILLIGRAM, QD
     Route: 065
     Dates: start: 20241231
  2. HERBALS [Suspect]
     Active Substance: HERBALS
     Indication: Product used for unknown indication
     Route: 065
  3. ORGOVYX [Suspect]
     Active Substance: RELUGOLIX
     Indication: Prostate cancer
     Dosage: 1200 MILLIGRAM, QD
     Route: 048
     Dates: start: 20241231
  4. PREDNISONE [Suspect]
     Active Substance: PREDNISONE
     Indication: Prostate cancer
     Dosage: 5 MILLIGRAM, QD
     Route: 065
     Dates: start: 20241231

REACTIONS (8)
  - Asthenia [Unknown]
  - Heart rate irregular [Unknown]
  - Hypersomnia [Unknown]
  - Micturition urgency [Unknown]
  - Weight increased [Unknown]
  - Nocturia [Unknown]
  - Hot flush [Unknown]
  - Incorrect dose administered [Unknown]
